FAERS Safety Report 23069795 (Version 1)
Quarter: 2023Q4

REPORT INFORMATION
  Report Type: Spontaneous
  Country: US (occurrence: US)
  Receive Date: 20231016
  Receipt Date: 20231016
  Transmission Date: 20240110
  Serious: Yes (Life-Threatening, Hospitalization, Other)
  Sender: FDA-Public Use
  Company Number: US-SUN PHARMACEUTICAL INDUSTRIES LTD-2023R1-412676

PATIENT
  Age: 76 Year
  Sex: Male

DRUGS (6)
  1. CARBOPLATIN [Suspect]
     Active Substance: CARBOPLATIN
     Indication: Neuroendocrine carcinoma
     Dosage: THREE CYCLE
     Route: 065
  2. CARBOPLATIN [Suspect]
     Active Substance: CARBOPLATIN
     Indication: Metastases to liver
  3. ETOPOSIDE [Suspect]
     Active Substance: ETOPOSIDE
     Indication: Neuroendocrine carcinoma
     Dosage: THREE CYCLE
     Route: 065
  4. ETOPOSIDE [Suspect]
     Active Substance: ETOPOSIDE
     Indication: Metastases to liver
  5. ATEZOLIZUMAB [Suspect]
     Active Substance: ATEZOLIZUMAB
     Indication: Neuroendocrine carcinoma
  6. ATEZOLIZUMAB [Suspect]
     Active Substance: ATEZOLIZUMAB
     Indication: Metastases to liver

REACTIONS (3)
  - Respiratory failure [Unknown]
  - Superior vena cava syndrome [Unknown]
  - Tracheo-oesophageal fistula [Unknown]
